FAERS Safety Report 5925190-0 (Version None)
Quarter: 2008Q3

REPORT INFORMATION
  Report Type: 
  Country: None (occurrence: None)
  Receive Date: 20080909
  Receipt Date: 20070919
  Transmission Date: 20090109
  Serious: Yes (Death)
  Sender: FDA-Public Use
  Company Number: 163-20785-07081869

PATIENT
  Age: 13 Year
  Sex: Female

DRUGS (1)
  1. THALOMID [Suspect]
     Indication: BRAIN NEOPLASM MALIGNANT
     Dosage: 300 MG, 3 IN 1 D, ORAL
     Route: 048
     Dates: start: 20070109, end: 20070101

REACTIONS (1)
  - NEOPLASM PROGRESSION [None]
